FAERS Safety Report 17416472 (Version 3)
Quarter: 2020Q1

REPORT INFORMATION
  Report Type: Spontaneous
  Country: NL (occurrence: NL)
  Receive Date: 20200213
  Receipt Date: 20200309
  Transmission Date: 20200409
  Serious: Yes (Other)
  Sender: FDA-Public Use
  Company Number: NL-PFIZER INC-2020062315

PATIENT
  Age: 42 Year
  Sex: Female
  Weight: 94 kg

DRUGS (7)
  1. SOMAVERT [Suspect]
     Active Substance: PEGVISOMANT
     Indication: ACROMEGALY
     Dosage: 10 MG, 1X/DAY
     Route: 058
     Dates: start: 201904
  2. DEXTRAN 70 [Concomitant]
     Active Substance: DEXTRAN 70
     Dosage: 1 GTT, 6X/ DAY
     Route: 047
  3. PANTOPRAZOLE [Concomitant]
     Active Substance: PANTOPRAZOLE
     Dosage: 40 MG, 1X/DAY
     Route: 048
  4. AMITRIPTYLINE [Concomitant]
     Active Substance: AMITRIPTYLINE
     Dosage: 10 MG, 1X/DAY
     Route: 048
  5. NAPROXEN. [Concomitant]
     Active Substance: NAPROXEN
     Dosage: 250 MG, 1X/DAY
     Route: 048
  6. DROSPIRENONA + ETINILESTRADIOL [Concomitant]
     Dosage: 1 DF, 1X/DAY, NO STOPWEEK
     Route: 048
  7. LEVOTHYROXINE. [Concomitant]
     Active Substance: LEVOTHYROXINE
     Dosage: 25 UG, 1X/DAY
     Route: 048

REACTIONS (4)
  - Pyrexia [Unknown]
  - Pneumonia influenzal [Not Recovered/Not Resolved]
  - Fatigue [Unknown]
  - Thyroid function test abnormal [Not Recovered/Not Resolved]

NARRATIVE: CASE EVENT DATE: 201906
